FAERS Safety Report 8816729 (Version 1)
Quarter: 2012Q4

REPORT INFORMATION
  Report Type: Spontaneous
  Country: US (occurrence: None)
  Receive Date: 20121001
  Receipt Date: 20121001
  Transmission Date: 20130627
  Serious: Yes (Death, Disabling, Other)
  Sender: FDA-Public Use
  Company Number: 1419374

PATIENT
  Age: 78 Year
  Sex: Male

DRUGS (7)
  1. HYDROMORPHONE HYDROCHLORIDE [Suspect]
     Indication: DRUG USE FOR UNKNOWN INDICATION
  2. NALOXONE HYDROCHLORIDE [Suspect]
  3. SOMA [Suspect]
  4. FENTANYL CITRATE [Suspect]
     Route: 042
     Dates: start: 20120622
  5. ATIVAN [Suspect]
     Route: 042
  6. PERCOCET /00446701/ [Suspect]
     Dosage: 5/325 mg
  7. PROPOFOL [Suspect]
     Route: 041
     Dates: start: 20120619

REACTIONS (3)
  - Cardiac arrest [None]
  - Respiratory failure [None]
  - Respiratory disorder [None]
